FAERS Safety Report 21254714 (Version 1)
Quarter: 2022Q3

REPORT INFORMATION
  Report Type: Spontaneous
  Country: JP (occurrence: JP)
  Receive Date: 20220825
  Receipt Date: 20220825
  Transmission Date: 20221026
  Serious: Yes (Life-Threatening, Hospitalization, Other)
  Sender: FDA-Public Use
  Company Number: JP-MACLEODS PHARMACEUTICALS US LTD-MAC2022036895

PATIENT

DRUGS (6)
  1. CELECOXIB [Suspect]
     Active Substance: CELECOXIB
     Indication: Product used for unknown indication
     Dosage: 18 DOSAGE FORM, SINGLE
     Route: 065
  2. LACOSAMIDE [Suspect]
     Active Substance: LACOSAMIDE
     Indication: Product used for unknown indication
     Dosage: 328 DOSAGE FORM, SINGLE, TOTAL OF 16,400 MG
     Route: 065
  3. REBAMIPIDE [Suspect]
     Active Substance: REBAMIPIDE
     Indication: Product used for unknown indication
     Dosage: 26 DOSAGE FORM, SINGLE
     Route: 065
  4. PERAMPANEL [Suspect]
     Active Substance: PERAMPANEL
     Indication: Product used for unknown indication
     Dosage: 81 DOSAGE FORM, SINGLE, TOTAL OF 162 MG
     Route: 065
  5. NEUROTROPIN [Suspect]
     Active Substance: NEUROTROPIN
     Indication: Product used for unknown indication
     Dosage: 54 DOSAGE FORM, SINGLE, 54 TABLETS OF 4 UNITS
     Route: 065
  6. LOXOPROFEN SODIUM [Suspect]
     Active Substance: LOXOPROFEN SODIUM
     Indication: Product used for unknown indication
     Dosage: 2 DOSAGE FORM, SINGLE
     Route: 065

REACTIONS (5)
  - Altered state of consciousness [Recovered/Resolved]
  - Toxicity to various agents [Recovered/Resolved]
  - Toxicity to various agents [Recovered/Resolved]
  - Clonic convulsion [Recovered/Resolved]
  - Overdose [Recovered/Resolved]
